FAERS Safety Report 5910678-9 (Version None)
Quarter: 2008Q4

REPORT INFORMATION
  Report Type: 
  Country: None (occurrence: None)
  Receive Date: 20081007
  Receipt Date: 20080926
  Transmission Date: 20090506
  Serious: Yes (Hospitalization)
  Sender: FDA-Public Use
  Company Number: FR-ROCHE-588804

PATIENT
  Age: 50 Year
  Sex: Female

DRUGS (5)
  1. ROCEPHIN [Suspect]
     Route: 065
     Dates: start: 20080323, end: 20080407
  2. ROCEPHIN [Suspect]
     Route: 065
     Dates: start: 20080411
  3. VANCOMYCIN HCL [Suspect]
     Route: 065
     Dates: start: 20080407, end: 20080410
  4. RIFADIN [Suspect]
     Route: 065
     Dates: start: 20080327, end: 20080410
  5. GENTALLINE [Concomitant]
     Dates: start: 20080323, end: 20080327

REACTIONS (4)
  - BLOOD PRESSURE DECREASED [None]
  - LIP OEDEMA [None]
  - PRURITUS GENERALISED [None]
  - RASH MACULO-PAPULAR [None]
